FAERS Safety Report 22917880 (Version 2)
Quarter: 2023Q4

REPORT INFORMATION
  Report Type: Spontaneous
  Country: JP (occurrence: None)
  Receive Date: 20230907
  Receipt Date: 20231006
  Transmission Date: 20240110
  Serious: Yes (Hospitalization, Other)
  Sender: FDA-Public Use
  Company Number: 2023A031406

PATIENT
  Age: 1137 Month
  Sex: Male
  Weight: 45 kg

DRUGS (11)
  1. DAPAGLIFLOZIN [Suspect]
     Active Substance: DAPAGLIFLOZIN
     Indication: Type 2 diabetes mellitus
     Route: 048
  2. DAPAGLIFLOZIN [Suspect]
     Active Substance: DAPAGLIFLOZIN
     Indication: Type 2 diabetes mellitus
     Route: 048
     Dates: start: 20221125, end: 20230127
  3. INSULIN NOS [Concomitant]
     Active Substance: INSULIN NOS
     Indication: Type 2 diabetes mellitus
     Dates: end: 2022
  4. JANUVIA [Concomitant]
     Active Substance: SITAGLIPTIN PHOSPHATE
     Indication: Type 2 diabetes mellitus
     Route: 048
     Dates: start: 20221125, end: 20230127
  5. AMLODIPINE BESYLATE [Concomitant]
     Active Substance: AMLODIPINE BESYLATE
     Indication: Hypertension
     Route: 048
     Dates: end: 20230127
  6. LEVOTHYROXINE [Concomitant]
     Active Substance: LEVOTHYROXINE
     Indication: Hypothyroidism
     Route: 048
     Dates: end: 20230127
  7. PRANOPROFEN [Concomitant]
     Active Substance: PRANOPROFEN
     Route: 048
     Dates: start: 20230121, end: 20230127
  8. NIPOLAZIN [Concomitant]
     Route: 048
     Dates: start: 20230121, end: 20230127
  9. FLOMOX [Concomitant]
     Route: 048
     Dates: start: 20230121, end: 20230127
  10. CIMETIDINE [Concomitant]
     Active Substance: CIMETIDINE
     Route: 048
     Dates: start: 20230121, end: 20230127
  11. DEXTROMETHORPHAN HYDROBROMIDE [Concomitant]
     Active Substance: DEXTROMETHORPHAN HYDROBROMIDE
     Route: 048
     Dates: start: 20230121, end: 20230127

REACTIONS (6)
  - Acidosis [Recovering/Resolving]
  - Dehydration [Recovering/Resolving]
  - COVID-19 pneumonia [Recovering/Resolving]
  - Decreased appetite [Recovering/Resolving]
  - COVID-19 [Unknown]
  - Off label use [Unknown]

NARRATIVE: CASE EVENT DATE: 20221201
